FAERS Safety Report 5495535-7 (Version None)
Quarter: 2007Q4

REPORT INFORMATION
  Report Type: 
  Country: None (occurrence: None)
  Receive Date: 20071015
  Receipt Date: 20070515
  Transmission Date: 20080405
  Serious: No
  Sender: FDA-Public Use
  Company Number: S07-USA-02103-01

PATIENT
  Age: 35 Year
  Sex: Female

DRUGS (2)
  1. LEXAPRO [Suspect]
     Indication: DEPRESSION
     Dosage: 10 MG QD PO
     Route: 048
     Dates: start: 20060801, end: 20070301
  2. LEXAPRO [Suspect]
     Indication: DEPRESSION
     Dates: start: 20070301, end: 20070501

REACTIONS (1)
  - DRUG WITHDRAWAL SYNDROME [None]
